FAERS Safety Report 9835654 (Version 1)
Quarter: 2014Q1

REPORT INFORMATION
  Report Type: Spontaneous
  Country: FR (occurrence: FR)
  Receive Date: 20140122
  Receipt Date: 20140122
  Transmission Date: 20141002
  Serious: Yes (Other)
  Sender: FDA-Public Use
  Company Number: FR-PFIZER INC-2014013881

PATIENT
  Age: 46 Year
  Sex: Female

DRUGS (2)
  1. ARACYTINE [Suspect]
     Indication: LEUKAEMIA
     Dosage: 3000 MG/M2, UNK
  2. METHOTREXATE [Concomitant]
     Dosage: 1000 MG, UNK

REACTIONS (1)
  - Encephalitis [Unknown]
